FAERS Safety Report 11018745 (Version 2)
Quarter: 2015Q2

REPORT INFORMATION
  Report Type: Spontaneous
  Country: US (occurrence: US)
  Receive Date: 20150412
  Receipt Date: 20150524
  Transmission Date: 20150821
  Serious: Yes (Other)
  Sender: FDA-Public Use
  Company Number: US-JNJFOC-20140504346

PATIENT
  Sex: Female

DRUGS (3)
  1. NY-ESO-1 [Suspect]
     Active Substance: INVESTIGATIONAL PRODUCT
     Indication: OVARIAN EPITHELIAL CANCER RECURRENT
     Dosage: DAY 15, 250 MG OF NY-ESO-1 PROTEIN, ADMIXED WITH 250 MG OF GM-CSF, WAS EMULSIFIED IN MONTANIDE
     Route: 058
  2. DOXORUBICIN HYDROCHLORIDE. [Suspect]
     Active Substance: DOXORUBICIN HYDROCHLORIDE
     Indication: OVARIAN EPITHELIAL CANCER RECURRENT
     Dosage: DAY 8
     Route: 042
  3. DECITABINE. [Suspect]
     Active Substance: DECITABINE
     Indication: OVARIAN EPITHELIAL CANCER RECURRENT
     Dosage: 10 MG/M2 X D5, 45 MG/M2X D1, 90 MG/M2 X D1.
     Route: 042

REACTIONS (3)
  - Neutropenia [Unknown]
  - Febrile neutropenia [Unknown]
  - Product use issue [Unknown]
